FAERS Safety Report 16166728 (Version 1)
Quarter: 2019Q2

REPORT INFORMATION
  Report Type: Spontaneous
  Country: MX (occurrence: MX)
  Receive Date: 20190407
  Receipt Date: 20190407
  Transmission Date: 20190711
  Serious: Yes (Death, Other)
  Sender: FDA-Public Use
  Company Number: PHHY2019MX078352

PATIENT
  Age: 65 Year
  Sex: Male

DRUGS (3)
  1. TACROLIMUS. [Suspect]
     Active Substance: TACROLIMUS
     Indication: LUNG TRANSPLANT
     Dosage: 5 MG, UNK
     Route: 065
  2. TACROLIMUS. [Suspect]
     Active Substance: TACROLIMUS
     Indication: IMMUNOSUPPRESSANT DRUG THERAPY
  3. MYCOPHENOLATE MOFETIL. [Suspect]
     Active Substance: MYCOPHENOLATE MOFETIL
     Indication: LUNG TRANSPLANT
     Dosage: 1 MG, UNK
     Route: 065

REACTIONS (9)
  - Diffuse alveolar damage [Unknown]
  - Pulmonary congestion [Fatal]
  - Neurological decompensation [Unknown]
  - Anaemia [Unknown]
  - Product use in unapproved indication [Unknown]
  - Acute kidney injury [Not Recovered/Not Resolved]
  - Thrombotic microangiopathy [Unknown]
  - Thrombocytopenia [Unknown]
  - Haemodynamic instability [Unknown]
